FAERS Safety Report 4932314-0 (Version None)
Quarter: 2006Q1

REPORT INFORMATION
  Report Type: 
  Country: None (occurrence: None)
  Receive Date: 20060228
  Receipt Date: 20060210
  Transmission Date: 20060701
  Serious: Yes (Disabling)
  Sender: FDA-Public Use
  Company Number: ENT 2006-0018

PATIENT
  Age: 82 Year
  Sex: Male

DRUGS (4)
  1. COMTAN [Suspect]
     Indication: PARKINSON'S DISEASE
     Dosage: 1000 MG (200 MG, 5 IN 1 D) ORAL
     Route: 048
     Dates: start: 20050920, end: 20060123
  2. SINEMET [Concomitant]
  3. EFFEXOR XR [Concomitant]
  4. ATIVAN [Concomitant]

REACTIONS (6)
  - ABDOMINAL PAIN UPPER [None]
  - DYSPHAGIA [None]
  - OESOPHAGEAL PAIN [None]
  - ORAL PAIN [None]
  - STOMATITIS [None]
  - WRONG TECHNIQUE IN DRUG USAGE PROCESS [None]
